FAERS Safety Report 5365386-2 (Version None)
Quarter: 2007Q2

REPORT INFORMATION
  Report Type: 
  Country: None (occurrence: None)
  Receive Date: 20070621
  Receipt Date: 20070613
  Transmission Date: 20071010
  Serious: Yes (Death, Other)
  Sender: FDA-Public Use
  Company Number: US-ELI_LILLY_AND_COMPANY-US200705001378

PATIENT
  Age: 59 Year
  Sex: Male
  Weight: 89.342 kg

DRUGS (5)
  1. GEMZAR [Suspect]
     Indication: PANCREATIC CARCINOMA METASTATIC
     Dosage: 2000 MG/M2, UNK
     Route: 042
     Dates: start: 20070430
  2. ASPIRIN [Concomitant]
     Dosage: 81 MG, UNKNOWN
  3. ENALAPRIL [Concomitant]
     Dosage: 10 MG, DAILY (1/D)
     Route: 048
     Dates: end: 20070502
  4. DYAZIDE [Concomitant]
     Dosage: UNK D/F, DAILY (1/D)
     Route: 048
     Dates: end: 20070502
  5. AMBIEN [Concomitant]
     Dosage: UNK, UNKNOWN

REACTIONS (2)
  - MYOCARDIAL INFARCTION [None]
  - PULMONARY EMBOLISM [None]
